FAERS Safety Report 5951115-8 (Version None)
Quarter: 2008Q4

REPORT INFORMATION
  Report Type: 
  Country: None (occurrence: None)
  Receive Date: 20081112
  Receipt Date: 20081112
  Transmission Date: 20090506
  Serious: Yes (Other)
  Sender: FDA-Public Use
  Company Number: None

PATIENT
  Age: 50 Year
  Sex: Female
  Weight: 127.0072 kg

DRUGS (2)
  1. PROTONIX [Suspect]
     Indication: GASTRITIS EROSIVE
     Dosage: 40MG DAILY PO  : 40MG BID PO
     Route: 048
     Dates: start: 20080922, end: 20081003
  2. PROTONIX [Suspect]
     Indication: GASTRITIS EROSIVE
     Dosage: 40MG DAILY PO  : 40MG BID PO
     Route: 048
     Dates: start: 20081003, end: 20081005

REACTIONS (1)
  - TINNITUS [None]
